FAERS Safety Report 6874993-7 (Version None)
Quarter: 2010Q3

REPORT INFORMATION
  Report Type: 
  Country: None (occurrence: None)
  Receive Date: 20100723
  Receipt Date: 20100718
  Transmission Date: 20110219
  Serious: Yes (Death)
  Sender: FDA-Public Use
  Company Number: 2010SP039751

PATIENT
  Age: 40 Year
  Sex: Male

DRUGS (4)
  1. REMERON [Suspect]
     Indication: DEPRESSION
     Dosage: 15 MG; ; PO
     Route: 048
     Dates: start: 20100706, end: 20100707
  2. REMERON [Suspect]
     Indication: INSOMNIA
     Dosage: 15 MG; ; PO
     Route: 048
     Dates: start: 20100706, end: 20100707
  3. PAXIL [Concomitant]
  4. DIAZEPAM [Concomitant]

REACTIONS (1)
  - COMPLETED SUICIDE [None]
